FAERS Safety Report 17390889 (Version 4)
Quarter: 2021Q1

REPORT INFORMATION
  Report Type: Report from Study
  Country: IE (occurrence: IE)
  Receive Date: 20200207
  Receipt Date: 20210204
  Transmission Date: 20210419
  Serious: Yes (Hospitalization, Other)
  Sender: FDA-Public Use
  Company Number: IE-JNJFOC-20190308226

PATIENT
  Age: 55 Year
  Sex: Female

DRUGS (2)
  1. STELARA [Suspect]
     Active Substance: USTEKINUMAB
     Indication: CROHN^S DISEASE
     Dosage: LAST ADMINISTERED ON 04?DEC?2019
     Route: 058
     Dates: start: 20181204
  2. BUDESONIDE. [Concomitant]
     Active Substance: BUDESONIDE
     Route: 050

REACTIONS (5)
  - Lower respiratory tract infection [Unknown]
  - Incorrect dose administered [Unknown]
  - Hospitalisation [Not Recovered/Not Resolved]
  - Off label use [Unknown]
  - Smear cervix abnormal [Recovered/Resolved]

NARRATIVE: CASE EVENT DATE: 201902
